APPROVED DRUG PRODUCT: PHENDIMETRAZINE TARTRATE
Active Ingredient: PHENDIMETRAZINE TARTRATE
Strength: 35MG
Dosage Form/Route: TABLET;ORAL
Application: A086834 | Product #001
Applicant: FERNDALE LABORATORIES INC
Approved: Sep 15, 1983 | RLD: No | RS: No | Type: DISCN